FAERS Safety Report 10023702 (Version 1)
Quarter: 2014Q1

REPORT INFORMATION
  Report Type: Report from Study
  Country: CA (occurrence: CA)
  Receive Date: 20140320
  Receipt Date: 20140320
  Transmission Date: 20141002
  Serious: Yes (Other)
  Sender: FDA-Public Use
  Company Number: CA-BRISTOL-MYERS SQUIBB COMPANY-20471579

PATIENT
  Age: 75 Year
  Sex: Female

DRUGS (6)
  1. ORENCIA [Suspect]
     Indication: RHEUMATOID ARTHRITIS
     Dosage: 1DF=750 UNIT NOS.06MAR14 INFUSION WAS CANCELLED
     Route: 042
     Dates: start: 20110614
  2. PREDNISONE [Concomitant]
  3. HYDROXYCHLOROQUINE [Concomitant]
  4. METHOTREXATE [Concomitant]
  5. CODEINE PHOSPHATE [Concomitant]
  6. ADVAIR [Concomitant]

REACTIONS (2)
  - Abasia [Unknown]
  - Wound [Unknown]
